FAERS Safety Report 13801094 (Version 1)
Quarter: 2017Q3

REPORT INFORMATION
  Report Type: Spontaneous
  Country: US (occurrence: US)
  Receive Date: 20170727
  Receipt Date: 20170727
  Transmission Date: 20171127
  Serious: No
  Sender: FDA-Public Use
  Company Number: US-ASPEN PHARMA TRADING LIMITED US-AG-2017-004972

PATIENT
  Sex: Female

DRUGS (2)
  1. HYDROXYPROGESTERONE [Suspect]
     Active Substance: HYDROXYPROGESTERONE
     Indication: ABORTION SPONTANEOUS
     Dosage: FROM THE 16TH TO THE 35TH WEEK OF THE PREGNANCY.?UNKNOWN DOSE, WEEKLY.
     Route: 065
  2. HYDROXYPROGESTERONE [Suspect]
     Active Substance: HYDROXYPROGESTERONE
     Indication: PREMATURE BABY

REACTIONS (3)
  - Maternal exposure during pregnancy [Unknown]
  - Off label use [Unknown]
  - Premature baby [Unknown]
